FAERS Safety Report 7337843-0 (Version None)
Quarter: 2011Q1

REPORT INFORMATION
  Report Type: 
  Country: None (occurrence: None)
  Receive Date: 20110224
  Receipt Date: 20110211
  Transmission Date: 20110831
  Serious: Yes (Death, Hospitalization)
  Sender: FDA-Public Use
  Company Number: 1000018922

PATIENT
  Sex: Female
  Weight: 3.41 kg

DRUGS (1)
  1. DINOPROSTONE (DINOPROSTONE) [Suspect]
     Indication: LABOUR INDUCTION
     Dosage: 10 MG,TRANSPLACENTAL
     Route: 064

REACTIONS (3)
  - FOETAL HEART RATE DECREASED [None]
  - INTRA-UTERINE DEATH [None]
  - DRUG EXPOSURE DURING PREGNANCY [None]
